FAERS Safety Report 20634842 (Version 6)
Quarter: 2022Q3

REPORT INFORMATION
  Report Type: Report from Study
  Country: JP (occurrence: JP)
  Receive Date: 20220325
  Receipt Date: 20220919
  Transmission Date: 20221027
  Serious: Yes (Hospitalization, Other)
  Sender: FDA-Public Use
  Company Number: JP-ONO-2019JP034145

PATIENT
  Age: 65 Year
  Sex: Male
  Weight: 69 kg

DRUGS (40)
  1. ETELCALCETIDE [Suspect]
     Active Substance: ETELCALCETIDE
     Indication: Hyperparathyroidism secondary
     Dosage: 2.5 MILLIGRAM, Q56H
     Route: 010
     Dates: start: 20190729, end: 20190814
  2. ETELCALCETIDE [Suspect]
     Active Substance: ETELCALCETIDE
     Dosage: 5 MILLIGRAM, Q56H
     Route: 010
     Dates: start: 20190816, end: 20190911
  3. ETELCALCETIDE [Suspect]
     Active Substance: ETELCALCETIDE
     Dosage: 7.5 MILLIGRAM, Q56H
     Route: 010
     Dates: start: 20190913
  4. DARBEPOETIN ALFA [Concomitant]
     Active Substance: DARBEPOETIN ALFA
     Dosage: 10 MUG, EVERYDAY
     Route: 065
     Dates: end: 20180720
  5. DARBEPOETIN ALFA [Concomitant]
     Active Substance: DARBEPOETIN ALFA
     Dosage: 15 MUG, EVERYDAY
     Route: 065
     Dates: start: 20180804, end: 20180824
  6. DARBEPOETIN ALFA [Concomitant]
     Active Substance: DARBEPOETIN ALFA
     Dosage: 20 MUG, EVERYDAY
     Route: 065
     Dates: start: 20180831, end: 20180907
  7. DARBEPOETIN ALFA [Concomitant]
     Active Substance: DARBEPOETIN ALFA
     Dosage: 30 MUG, EVERYDAY
     Route: 065
     Dates: start: 20180914, end: 20181207
  8. DARBEPOETIN ALFA [Concomitant]
     Active Substance: DARBEPOETIN ALFA
     Dosage: 20 MUG, EVERYDAY
     Route: 065
     Dates: start: 20181214, end: 20190118
  9. DARBEPOETIN ALFA [Concomitant]
     Active Substance: DARBEPOETIN ALFA
     Dosage: 15 MUG, EVERYDAY
     Route: 065
     Dates: start: 20190125, end: 20190125
  10. DARBEPOETIN ALFA [Concomitant]
     Active Substance: DARBEPOETIN ALFA
     Dosage: 10 MUG, EVERYDAY
     Route: 065
     Dates: start: 20190201, end: 20190322
  11. DARBEPOETIN ALFA [Concomitant]
     Active Substance: DARBEPOETIN ALFA
     Dosage: 5 MUG, EVERYDAY
     Route: 065
     Dates: start: 20190329, end: 20190621
  12. DARBEPOETIN ALFA [Concomitant]
     Active Substance: DARBEPOETIN ALFA
     Dosage: 10 MUG, EVERYDAY
     Route: 065
     Dates: start: 20190628, end: 20190719
  13. DARBEPOETIN ALFA [Concomitant]
     Active Substance: DARBEPOETIN ALFA
     Dosage: 15 MUG, EVERYDAY
     Route: 065
     Dates: start: 20190726, end: 20190809
  14. CALCITRIOL [Concomitant]
     Active Substance: CALCITRIOL
     Dosage: 1 MUG, Q84H
     Route: 042
     Dates: start: 20200622, end: 20200710
  15. CALCITRIOL [Concomitant]
     Active Substance: CALCITRIOL
     Dosage: 1 MUG, Q56H
     Route: 042
     Dates: start: 20200713, end: 20200821
  16. CALCITRIOL [Concomitant]
     Active Substance: CALCITRIOL
     Dosage: 1 MUG, Q84H
     Route: 042
     Dates: start: 20200824
  17. FERRIC CITRATE ANHYDROUS [Concomitant]
     Active Substance: FERRIC CITRATE ANHYDROUS
     Dosage: 1500 MG, EVERYDAY
     Route: 048
     Dates: end: 20180831
  18. FERRIC CITRATE ANHYDROUS [Concomitant]
     Active Substance: FERRIC CITRATE ANHYDROUS
     Dosage: 500 MILLIGRAM, QD
     Route: 048
     Dates: start: 20181214, end: 20200929
  19. LIDOCAINE [Concomitant]
     Active Substance: LIDOCAINE
     Indication: Puncture site pain
     Dosage: 2 DOSAGE FORM, DIALYSIS DAY
     Route: 062
  20. AMLODIPINE BESYLATE\AZILSARTAN [Concomitant]
     Active Substance: AMLODIPINE BESYLATE\AZILSARTAN
     Indication: Hypertension
     Dosage: 2 DOSAGE FORM, QD
     Route: 048
  21. CARVEDILOL [Concomitant]
     Active Substance: CARVEDILOL
     Indication: Hypertension
     Dosage: 5 MILLIGRAM, QD
     Route: 048
     Dates: start: 20210915
  22. ALDOMET [Concomitant]
     Active Substance: METHYLDOPA
     Indication: Hypertension
     Dosage: 250 MILLIGRAM, QD
     Route: 048
     Dates: start: 20181119, end: 20220430
  23. VONOPRAZAN FUMARATE [Concomitant]
     Active Substance: VONOPRAZAN FUMARATE
     Indication: Hiatus hernia
     Dosage: 20 MILLIGRAM, QD
     Route: 048
     Dates: start: 20200909
  24. VONOPRAZAN FUMARATE [Concomitant]
     Active Substance: VONOPRAZAN FUMARATE
     Indication: Chronic gastritis
  25. REBAMIPIDE [Concomitant]
     Active Substance: REBAMIPIDE
     Indication: Chronic gastritis
     Dosage: 300 MILLIGRAM, QD
     Route: 048
     Dates: start: 20200415
  26. RENAGEL [Concomitant]
     Active Substance: SEVELAMER HYDROCHLORIDE
     Indication: Hyperphosphataemia
     Dosage: 750 MILLIGRAM, QD
     Route: 048
     Dates: start: 20201202, end: 20201222
  27. RENAGEL [Concomitant]
     Active Substance: SEVELAMER HYDROCHLORIDE
     Dosage: 1500 MILLIGRAM, QD
     Route: 048
     Dates: start: 20201223, end: 20220429
  28. RENAGEL [Concomitant]
     Active Substance: SEVELAMER HYDROCHLORIDE
     Dosage: 1500 MILLIGRAM, QD
     Route: 048
     Dates: start: 20220511
  29. MIYA-BM [Concomitant]
     Active Substance: CLOSTRIDIUM BUTYRICUM SPORES STRAIN M-55
     Indication: Chronic gastritis
     Dosage: 3 DOSAGE FORM, QD
     Route: 048
     Dates: start: 20200724
  30. Fesin [Concomitant]
     Dosage: 40 MILLIGRAM, QWK
     Route: 042
     Dates: start: 20210122, end: 20210212
  31. Fesin [Concomitant]
     Dosage: 40 MILLIGRAM, QWK
     Route: 065
     Dates: start: 20210723, end: 20210813
  32. Fesin [Concomitant]
     Dosage: 40 MILLIGRAM, QD
     Route: 065
     Dates: start: 20210924, end: 20211029
  33. Fesin [Concomitant]
     Dosage: 40 MILLIGRAM, QD
     Route: 065
     Dates: start: 20220325, end: 20220325
  34. CALCIUM CARBONATE [Concomitant]
     Active Substance: CALCIUM CARBONATE
     Dosage: 1500 MILLIGRAM, QD
     Route: 048
     Dates: start: 20201118, end: 20201201
  35. HERBAL NOS [Concomitant]
     Active Substance: HERBALS
     Indication: Chronic gastritis
     Dosage: 7.5 GRAM, QD
     Route: 048
     Dates: start: 20201014, end: 20220429
  36. ZilMlo [Concomitant]
     Indication: Hypertension
     Dosage: 2 DOSAGE FORM, QD
     Route: 048
     Dates: start: 20220323, end: 20220430
  37. ROCALTROL [Concomitant]
     Active Substance: CALCITRIOL
     Dosage: 0.5 MUG, QW
     Route: 065
     Dates: start: 20190125, end: 20190222
  38. ROCALTROL [Concomitant]
     Active Substance: CALCITRIOL
     Dosage: 0.5 MUG, Q84H
     Dates: start: 20190225, end: 20190524
  39. ROCALTROL [Concomitant]
     Active Substance: CALCITRIOL
     Dosage: 1.0 MUG, Q84H
     Dates: start: 20190527, end: 20200619
  40. KETOPROFEN [Concomitant]
     Active Substance: KETOPROFEN
     Indication: Back pain
     Dosage: 20 MILLIGRAM, QD
     Route: 062
     Dates: start: 20211222

REACTIONS (2)
  - Cholecystitis acute [Recovered/Resolved]
  - Cholecystitis acute [Recovered/Resolved]

NARRATIVE: CASE EVENT DATE: 20211224
